FAERS Safety Report 15631561 (Version 2)
Quarter: 2018Q4

REPORT INFORMATION
  Report Type: Spontaneous
  Country: US (occurrence: US)
  Receive Date: 20181119
  Receipt Date: 20181126
  Transmission Date: 20190205
  Serious: No
  Sender: FDA-Public Use
  Company Number: US-VERTEX PHARMACEUTICALS-2018-008177

PATIENT
  Age: 28 Year
  Sex: Female

DRUGS (9)
  1. INSULIN LISPRO [Concomitant]
     Active Substance: INSULIN LISPRO
  2. ALBUTEROL                          /00139501/ [Concomitant]
     Active Substance: ALBUTEROL
  3. IRON [Concomitant]
     Active Substance: IRON
  4. CREON [Concomitant]
     Active Substance: PANCRELIPASE AMYLASE\PANCRELIPASE LIPASE\PANCRELIPASE PROTEASE
  5. SYMDEKO [Suspect]
     Active Substance: IVACAFTOR\TEZACAFTOR
     Indication: CYSTIC FIBROSIS
     Dosage: 100MG TEZACAFTOR/150MG IVACAFTOR; 150MG IVACAFTOR, BID
     Route: 048
     Dates: start: 20181012
  6. VITAMIN A                          /00056001/ [Concomitant]
     Active Substance: RETINOL
  7. PULMOZYME [Concomitant]
     Active Substance: DORNASE ALFA
  8. VITAMIN E                          /00110501/ [Concomitant]
     Active Substance: TOCOPHEROL
  9. VITAMIN D3 [Concomitant]
     Active Substance: CHOLECALCIFEROL

REACTIONS (3)
  - Headache [Unknown]
  - Gastroenteritis viral [Recovered/Resolved]
  - Oropharyngeal pain [Unknown]

NARRATIVE: CASE EVENT DATE: 2018
